FAERS Safety Report 7318503-9 (Version None)
Quarter: 2011Q1

REPORT INFORMATION
  Report Type: 
  Country: None (occurrence: None)
  Receive Date: 20110228
  Receipt Date: 20110222
  Transmission Date: 20110831
  Serious: No
  Sender: FDA-Public Use
  Company Number: US-PFIZER INC-2011038512

PATIENT
  Sex: Female
  Weight: 81.633 kg

DRUGS (3)
  1. ADVIL PM [Suspect]
     Indication: INSOMNIA
  2. DIOVANE [Concomitant]
     Indication: HYPERTENSION
     Dosage: UNK
  3. ADVIL PM [Suspect]
     Indication: PAIN MANAGEMENT
     Dosage: 200 MG, 1X/DAY

REACTIONS (1)
  - DRUG INEFFECTIVE [None]
